FAERS Safety Report 24618887 (Version 3)
Quarter: 2024Q4

REPORT INFORMATION
  Report Type: Report from Study
  Country: US (occurrence: US)
  Receive Date: 20241114
  Receipt Date: 20241223
  Transmission Date: 20250115
  Serious: Yes (Other)
  Sender: BAYER HEALTHCARE PHARMACEUTICALS INC.
  Company Number: US-BAYER-2024A161772

PATIENT
  Age: 69 Year
  Sex: Female

DRUGS (3)
  1. STIVARGA [Suspect]
     Active Substance: REGORAFENIB MONOHYDRATE
     Indication: Colon cancer
     Dosage: 80 MG, QD
     Route: 048
     Dates: start: 20241101, end: 20241107
  2. STIVARGA [Suspect]
     Active Substance: REGORAFENIB MONOHYDRATE
     Indication: Rectal cancer
     Dosage: 120 MG, QD
     Route: 048
     Dates: start: 20241108, end: 20241114
  3. STIVARGA [Suspect]
     Active Substance: REGORAFENIB MONOHYDRATE
     Indication: Colon cancer
     Dosage: 160 MG, QD
     Route: 048
     Dates: start: 20241115

REACTIONS (7)
  - Neuropathy peripheral [Recovering/Resolving]
  - Paraesthesia [Recovering/Resolving]
  - Joint stiffness [Recovering/Resolving]
  - Fatigue [Unknown]
  - Dysphonia [Recovering/Resolving]
  - Headache [Recovering/Resolving]
  - Product use issue [None]

NARRATIVE: CASE EVENT DATE: 20241101
